FAERS Safety Report 5455913-9 (Version None)
Quarter: 2007Q3

REPORT INFORMATION
  Report Type: 
  Country: None (occurrence: None)
  Receive Date: 20070914
  Receipt Date: 20070831
  Transmission Date: 20080115
  Serious: Yes (Death)
  Sender: FDA-Public Use
  Company Number: 2007001622

PATIENT
  Age: 64 Year
  Sex: Female

DRUGS (6)
  1. ERLOTINIB (TABLET) [Suspect]
     Indication: BREAST CANCER METASTATIC
     Dosage: 150 MG (QD), ORAL
     Route: 048
     Dates: start: 20070709
  2. LETROZOLE [Suspect]
     Indication: BREAST CANCER METASTATIC
     Dosage: 2.5 MG (QD), ORAL
     Route: 048
     Dates: start: 20070709
  3. NEXIUM [Concomitant]
  4. COMPAZINE (PROCHLORPERAZINE EDISYLAT4E) [Concomitant]
  5. FERROUS SULFATE TAB [Concomitant]
  6. LORTAB [Concomitant]

REACTIONS (2)
  - PULMONARY EMBOLISM [None]
  - SUDDEN DEATH [None]
